FAERS Safety Report 25259841 (Version 1)
Quarter: 2025Q2

REPORT INFORMATION
  Report Type: Report from Study
  Country: GB (occurrence: GB)
  Receive Date: 20250501
  Receipt Date: 20250501
  Transmission Date: 20250716
  Serious: Yes (Other)
  Sender: ROCHE
  Company Number: GB-ROCHE-10000267726

PATIENT

DRUGS (2)
  1. BEVACIZUMAB [Suspect]
     Active Substance: BEVACIZUMAB
     Indication: Hepatocellular carcinoma
     Route: 042
  2. ATEZOLIZUMAB [Suspect]
     Active Substance: ATEZOLIZUMAB
     Indication: Hepatocellular carcinoma
     Route: 042

REACTIONS (15)
  - Hepatotoxicity [Unknown]
  - Colitis [Unknown]
  - Skin toxicity [Unknown]
  - Hyperthyroidism [Unknown]
  - Arthritis [Unknown]
  - Endocrine toxicity [Unknown]
  - Pneumonitis [Unknown]
  - Neuropathy peripheral [Unknown]
  - Nephritis [Unknown]
  - Myositis [Unknown]
  - Hypertension [Unknown]
  - Proteinuria [Unknown]
  - Haemorrhage [Unknown]
  - Thrombosis [Unknown]
  - Gastrointestinal haemorrhage [Unknown]
